FAERS Safety Report 7680478-0 (Version None)
Quarter: 2011Q3

REPORT INFORMATION
  Report Type: 
  Country: None (occurrence: None)
  Receive Date: 20110812
  Receipt Date: 20110801
  Transmission Date: 20111222
  Serious: Yes (Hospitalization)
  Sender: FDA-Public Use
  Company Number: US-JNJFOC-20080906880

PATIENT
  Sex: Male
  Weight: 170.5 kg

DRUGS (2)
  1. REMICADE [Suspect]
     Route: 042
     Dates: start: 20040406
  2. REMICADE [Suspect]
     Indication: INFLAMMATORY BOWEL DISEASE
     Dosage: TOTAL 5 DOSES
     Route: 042
     Dates: start: 20040521

REACTIONS (2)
  - POUCHITIS [None]
  - INTESTINAL OBSTRUCTION [None]
